FAERS Safety Report 5216593-0 (Version None)
Quarter: 2007Q1

REPORT INFORMATION
  Report Type: 
  Country: None (occurrence: None)
  Receive Date: 20070118
  Receipt Date: 20070111
  Transmission Date: 20070707
  Serious: Yes (Life-Threatening)
  Sender: FDA-Public Use
  Company Number: UKP07000007

PATIENT
  Age: 74 Year
  Sex: Male

DRUGS (3)
  1. ASACOL [Suspect]
     Indication: COLITIS ULCERATIVE
     Dosage: 1 DF, DAILY, RECTAL
     Route: 054
  2. AZATHIOPRINE [Concomitant]
  3. VITAMIN B12 NOS (VITAMIN B12 NOS) [Concomitant]

REACTIONS (4)
  - ANAL DISCOMFORT [None]
  - ENTEROCOCCAL INFECTION [None]
  - IATROGENIC INJURY [None]
  - SUBACUTE ENDOCARDITIS [None]
